FAERS Safety Report 5079293-6 (Version None)
Quarter: 2006Q3

REPORT INFORMATION
  Report Type: 
  Country: None (occurrence: None)
  Receive Date: 20060720
  Receipt Date: 20050617
  Transmission Date: 20061208
  Serious: Yes (Other)
  Sender: FDA-Public Use
  Company Number: 2005090319

PATIENT
  Sex: Female
  Weight: 72.5755 kg

DRUGS (2)
  1. CELEBREX [Suspect]
     Indication: ARTHRITIS
     Dosage: (100 MG)
  2. CELEBREX [Suspect]
     Indication: OSTEOPENIA
     Dosage: (100 MG)

REACTIONS (1)
  - MYOCARDIAL INFARCTION [None]
